FAERS Safety Report 10620000 (Version 2)
Quarter: 2014Q4

REPORT INFORMATION
  Report Type: Spontaneous
  Country: US (occurrence: None)
  Receive Date: 20141128
  Receipt Date: 20141219
  Transmission Date: 20150529
  Serious: Yes (Life-Threatening, Hospitalization, Other)
  Sender: FDA-Public Use
  Company Number: 2014-US-015407

PATIENT
  Age: 62 Year
  Sex: Female

DRUGS (1)
  1. XYREM [Suspect]
     Active Substance: SODIUM OXYBATE
     Indication: PRODUCT USED FOR UNKNOWN INDICATION
     Route: 048
     Dates: start: 200310, end: 2003

REACTIONS (5)
  - Unevaluable event [None]
  - Septic shock [None]
  - Lung neoplasm malignant [None]
  - Urosepsis [None]
  - Nephrolithiasis [None]

NARRATIVE: CASE EVENT DATE: 201402
